FAERS Safety Report 14011655 (Version 1)
Quarter: 2017Q3

REPORT INFORMATION
  Report Type: Spontaneous
  Country: US (occurrence: US)
  Receive Date: 20170926
  Receipt Date: 20170926
  Transmission Date: 20171128
  Serious: Yes (Other)
  Sender: FDA-Public Use
  Company Number: None

PATIENT
  Sex: Female
  Weight: 111.15 kg

DRUGS (12)
  1. VALSARTAN. [Concomitant]
     Active Substance: VALSARTAN
  2. NYSTATIN. [Concomitant]
     Active Substance: NYSTATIN
  3. INSULIN SYRINGE [Concomitant]
     Active Substance: DEVICE
  4. METFORMIN [Concomitant]
     Active Substance: METFORMIN HYDROCHLORIDE
  5. DOCUSATE [Concomitant]
     Active Substance: DOCUSATE
  6. PRAVACHOL [Concomitant]
     Active Substance: PRAVASTATIN SODIUM
  7. CARVEDILOL. [Concomitant]
     Active Substance: CARVEDILOL
  8. AFINITOR [Suspect]
     Active Substance: EVEROLIMUS
     Indication: GALLBLADDER CANCER
     Route: 048
     Dates: start: 20170623, end: 20170926
  9. GABAPENTIN. [Concomitant]
     Active Substance: GABAPENTIN
  10. ONDANSETRON [Concomitant]
     Active Substance: ONDANSETRON
  11. HYDRALAZINE [Concomitant]
     Active Substance: HYDRALAZINE HYDROCHLORIDE
  12. NEXIUM [Concomitant]
     Active Substance: ESOMEPRAZOLE MAGNESIUM

REACTIONS (1)
  - Disease progression [None]
